FAERS Safety Report 11840506 (Version 1)
Quarter: 2015Q4

REPORT INFORMATION
  Report Type: Spontaneous
  Country: US (occurrence: None)
  Receive Date: 20151215
  Receipt Date: 20151215
  Transmission Date: 20160305
  Serious: No
  Sender: FDA-Public Use
  Company Number: None

PATIENT
  Age: 35 Year
  Sex: Female
  Weight: 94.8 kg

DRUGS (1)
  1. PROGESTERONE CREAM WILD YAM PROGESTERONE WISE ESSENTIALS [Suspect]
     Active Substance: HERBALS\PROGESTERONE
     Indication: POLYCYSTIC OVARIES
     Dosage: 1/4 TSP TO 3/4 TSP ?APPLIED TO A SURFACE, USUALLY THE SKIN

REACTIONS (7)
  - Vomiting [None]
  - Crying [None]
  - Pain in extremity [None]
  - Coital bleeding [None]
  - Nausea [None]
  - Dyspareunia [None]
  - Anger [None]

NARRATIVE: CASE EVENT DATE: 20151214
